FAERS Safety Report 7604430-6 (Version None)
Quarter: 2011Q3

REPORT INFORMATION
  Report Type: 
  Country: None (occurrence: None)
  Receive Date: 20110712
  Receipt Date: 20110704
  Transmission Date: 20111222
  Serious: Yes (Other)
  Sender: FDA-Public Use
  Company Number: CN-ASTRAZENECA-2011SE39606

PATIENT
  Age: 28 Year
  Sex: Female

DRUGS (1)
  1. LIDOCAINE [Suspect]
     Dosage: CONCNWETRATION HAS BEEN DILUTE TO ONE HALF WITH WATER
     Route: 059

REACTIONS (3)
  - TREMOR [None]
  - DYSPNOEA [None]
  - DRUG HYPERSENSITIVITY [None]
